FAERS Safety Report 12625218 (Version 2)
Quarter: 2016Q3

REPORT INFORMATION
  Report Type: Spontaneous
  Country: US (occurrence: US)
  Receive Date: 20160805
  Receipt Date: 20160829
  Transmission Date: 20161109
  Serious: Yes (Death)
  Sender: FDA-Public Use
  Company Number: US-TAIHO ONCOLOGY INC-EU-2016-01870

PATIENT
  Age: 53 Year
  Sex: Female

DRUGS (4)
  1. LAMBROLIZUMAB [Concomitant]
     Active Substance: LAMBROLIZUMAB
     Dosage: NI
  2. ATENOLOL. [Concomitant]
     Active Substance: ATENOLOL
     Dosage: NI
  3. LONSURF [Suspect]
     Active Substance: TIPIRACIL HYDROCHLORIDE\TRIFLURIDINE
     Indication: COLON CANCER
     Dosage: CURRENT CYCLE 8 STARTED ON AN UNKNOWN DATE
     Route: 048
     Dates: start: 20151105
  4. NEXIUM [Concomitant]
     Active Substance: ESOMEPRAZOLE MAGNESIUM
     Dosage: NI

REACTIONS (1)
  - Disease progression [Fatal]

NARRATIVE: CASE EVENT DATE: 20160712
